FAERS Safety Report 8870139 (Version 1)
Quarter: 2012Q4

REPORT INFORMATION
  Report Type: 
  Country: US (occurrence: US)
  Receive Date: 20121026
  Receipt Date: 20121026
  Transmission Date: 20130627
  Serious: No
  Sender: FDA-Public Use
  Company Number: US-AMGEN-USASP2012043775

PATIENT
  Age: 55 Year
  Sex: Female
  Weight: 58.05 kg

DRUGS (13)
  1. ENBREL [Suspect]
     Indication: PRODUCT USED FOR UNKNOWN INDICATION
     Dosage: 50 mg, qwk
     Route: 058
  2. CYMBALTA [Concomitant]
     Dosage: 20 mg, UNK
  3. DICLOFENAC [Concomitant]
     Dosage: 75 mg, UNK
  4. CLONAZEPAM [Concomitant]
     Dosage: 1 mg, UNK
  5. GABAPENTIN [Concomitant]
     Dosage: 400 mg, UNK
  6. WELLBUTRIN [Concomitant]
     Dosage: 150 mg, UNK
  7. METHOTREXATE [Concomitant]
     Dosage: 1GM/40ML
  8. VITAMIN D3 [Concomitant]
     Dosage: 5000 unit, UNK
  9. ASPIRIN BUFFERED [Concomitant]
     Dosage: 325 mg, UNK
  10. CALCIUM 500+D [Concomitant]
     Dosage: UNK
  11. FISH OIL [Concomitant]
     Dosage: UNK
  12. FOLIC ACID [Concomitant]
     Dosage: 20 mg, UNK
  13. VYVANSE [Concomitant]
     Dosage: 70 mg, UNK

REACTIONS (4)
  - Myalgia [Unknown]
  - Disturbance in attention [Unknown]
  - Fatigue [Unknown]
  - Pneumonia [Recovered/Resolved]
